FAERS Safety Report 7345400-5 (Version None)
Quarter: 2011Q1

REPORT INFORMATION
  Report Type: 
  Country: None (occurrence: None)
  Receive Date: 20110310
  Receipt Date: 20110212
  Transmission Date: 20110831
  Serious: No
  Sender: FDA-Public Use
  Company Number: US-B.I. PHARMACEUTICALS,INC./RIDGEFIELD-2011-BP-01271BP

PATIENT
  Sex: Female

DRUGS (7)
  1. PREVACID [Concomitant]
     Indication: DYSPEPSIA
  2. PRADAXA [Suspect]
     Indication: ATRIAL FIBRILLATION
     Dosage: 300 MG
     Route: 048
     Dates: start: 20101201
  3. ASPIRIN [Concomitant]
     Indication: PROPHYLAXIS
  4. SOLATOL [Concomitant]
     Indication: ATRIAL FIBRILLATION
  5. DILANTIN [Concomitant]
     Indication: CONVULSION
  6. THYROID TAB [Concomitant]
     Indication: THYROID THERAPY
  7. ATIVAN [Concomitant]
     Indication: SLEEP DISORDER

REACTIONS (3)
  - SCRATCH [None]
  - PRURITUS GENERALISED [None]
  - PRURITUS [None]
